FAERS Safety Report 13227754 (Version 1)
Quarter: 2017Q1

REPORT INFORMATION
  Report Type: Spontaneous
  Country: US (occurrence: US)
  Receive Date: 20170213
  Receipt Date: 20170213
  Transmission Date: 20170428
  Serious: Yes (Death, Other)
  Sender: FDA-Public Use
  Company Number: US-JAZZ-2017-US-000407

PATIENT
  Age: 70 Year
  Sex: Female

DRUGS (6)
  1. MORPHINE [Suspect]
     Active Substance: MORPHINE
     Indication: SPINAL PAIN
  2. DILAUDID [Suspect]
     Active Substance: HYDROMORPHONE HYDROCHLORIDE
     Indication: SPINAL PAIN
  3. PRIALT [Suspect]
     Active Substance: ZICONOTIDE ACETATE
     Indication: SPINAL COLUMN STENOSIS
     Dosage: UNK ?G, QH
     Route: 037
  4. PRIALT [Suspect]
     Active Substance: ZICONOTIDE ACETATE
     Indication: SPINAL PAIN
  5. MORPHINE [Suspect]
     Active Substance: MORPHINE
     Indication: SPINAL COLUMN STENOSIS
     Dosage: 0.083 MG, QH
     Route: 037
     Dates: start: 201701
  6. DILAUDID [Suspect]
     Active Substance: HYDROMORPHONE HYDROCHLORIDE
     Indication: SPINAL COLUMN STENOSIS
     Dosage: UNK MG, QH
     Route: 037

REACTIONS (5)
  - Tremor [Unknown]
  - Mental status changes [Unknown]
  - Hallucination [Unknown]
  - Cardiac disorder [Fatal]
  - Unresponsive to stimuli [Unknown]

NARRATIVE: CASE EVENT DATE: 20170107
